FAERS Safety Report 4417652-2 (Version None)
Quarter: 2004Q2

REPORT INFORMATION
  Report Type: 
  Country: None (occurrence: None)
  Receive Date: 20040625
  Receipt Date: 20040512
  Transmission Date: 20050107
  Serious: Yes (Hospitalization)
  Sender: FDA-Public Use
  Company Number: 206265

PATIENT
  Age: 77 Year
  Sex: Female

DRUGS (11)
  1. AVASTIN [Suspect]
     Indication: COLORECTAL CANCER METASTATIC
     Dosage: INTRAVENOUS
     Route: 042
     Dates: start: 20040421
  2. FLUOROURACIL [Concomitant]
  3. ALLOPURINOL [Concomitant]
  4. CALAN SR (VERAPAMIL HYDROCHLORIDE) [Concomitant]
  5. GLYBURIDE [Concomitant]
  6. ASPIRIN [Concomitant]
  7. TENORMIN [Concomitant]
  8. LEVAQUIN [Concomitant]
  9. OXYCONTIN [Concomitant]
  10. OXYCODONE (OXYCODONE) [Concomitant]
  11. CEFTRIAXONE [Concomitant]

REACTIONS (1)
  - GASTROINTESTINAL HAEMORRHAGE [None]
